FAERS Safety Report 24164866 (Version 1)
Quarter: 2024Q3

REPORT INFORMATION
  Report Type: Spontaneous
  Country: US (occurrence: US)
  Receive Date: 20240801
  Receipt Date: 20240801
  Transmission Date: 20241016
  Serious: No
  Sender: DR REDDYS
  Company Number: US-E2BLSMVVAL-SPO/USA/24/0010760

PATIENT
  Age: 73 Year
  Sex: Male

DRUGS (3)
  1. METOPROLOL SUCCINATE [Suspect]
     Active Substance: METOPROLOL SUCCINATE
     Indication: Product used for unknown indication
     Route: 065
     Dates: start: 20240508
  2. TARPEYO [Suspect]
     Active Substance: BUDESONIDE
     Indication: IgA nephropathy
     Route: 048
     Dates: start: 20240508
  3. TARPEYO [Suspect]
     Active Substance: BUDESONIDE
     Indication: Glomerulonephritis membranoproliferative

REACTIONS (6)
  - Dizziness [Unknown]
  - Asthenia [Unknown]
  - Heart rate decreased [Unknown]
  - Fatigue [Unknown]
  - Overdose [Unknown]
  - Product residue present [Unknown]

NARRATIVE: CASE EVENT DATE: 20240509
